FAERS Safety Report 19963336 (Version 1)
Quarter: 2021Q4

REPORT INFORMATION
  Report Type: Spontaneous
  Country: DE (occurrence: DE)
  Receive Date: 20211018
  Receipt Date: 20211018
  Transmission Date: 20220304
  Serious: Yes (Hospitalization, Other)
  Sender: FDA-Public Use
  Company Number: DE-CELGENE-DEU-20211002642

PATIENT
  Age: 73 Year
  Sex: Male

DRUGS (4)
  1. FEDRATINIB [Suspect]
     Active Substance: FEDRATINIB
     Indication: Myelofibrosis
     Route: 048
     Dates: start: 202107, end: 202108
  2. FEDRATINIB [Suspect]
     Active Substance: FEDRATINIB
     Route: 048
     Dates: start: 20210817, end: 202110
  3. HYDROXYUREA [Concomitant]
     Active Substance: HYDROXYUREA
     Indication: Deep vein thrombosis
     Route: 065
     Dates: start: 1998, end: 2006
  4. RUXOLITINIB [Concomitant]
     Active Substance: RUXOLITINIB
     Indication: Deep vein thrombosis
     Route: 065
     Dates: start: 2013

REACTIONS (9)
  - Acute kidney injury [Unknown]
  - Tumour lysis syndrome [Unknown]
  - Atrial fibrillation [Unknown]
  - Aortic valve stenosis [Unknown]
  - Splenomegaly [Unknown]
  - Acute myeloid leukaemia [Unknown]
  - Pneumonia [Unknown]
  - Cardiac failure [Unknown]
  - Urinary retention [Unknown]

NARRATIVE: CASE EVENT DATE: 20210701
